FAERS Safety Report 6215827-3 (Version None)
Quarter: 2009Q2

REPORT INFORMATION
  Report Type: 
  Country: None (occurrence: None)
  Receive Date: 20090605
  Receipt Date: 20090529
  Transmission Date: 20091009
  Serious: Yes (Other)
  Sender: FDA-Public Use
  Company Number: US-AMGEN-KDL346934

PATIENT
  Sex: Female

DRUGS (16)
  1. PROCRIT [Suspect]
     Indication: HEPATITIS C
  2. RIBAVIRIN [Concomitant]
  3. PEGASYS [Concomitant]
  4. CELLCEPT [Concomitant]
  5. ACIPHEX [Concomitant]
  6. VALTREX [Concomitant]
  7. PROGRAF [Concomitant]
  8. FOLIC ACID [Concomitant]
  9. CALCIUM [Concomitant]
  10. FISH OIL [Concomitant]
  11. ASPIRIN [Concomitant]
     Route: 048
  12. AZOPT [Concomitant]
  13. LANTUS [Concomitant]
  14. NOVOLOG [Concomitant]
  15. LUMIGAN [Concomitant]
  16. ALPHAGAN [Concomitant]

REACTIONS (1)
  - THERAPEUTIC RESPONSE DECREASED [None]
